FAERS Safety Report 6473238-X (Version None)
Quarter: 2009Q4

REPORT INFORMATION
  Report Type: 
  Country: None (occurrence: None)
  Receive Date: 20091204
  Receipt Date: 20080611
  Transmission Date: 20100525
  Serious: Yes (Hospitalization)
  Sender: FDA-Public Use
  Company Number: JP-ELI_LILLY_AND_COMPANY-JP200805001725

PATIENT
  Sex: Male
  Weight: 63 kg

DRUGS (4)
  1. GEMCITABINE HCL [Suspect]
     Indication: BILE DUCT CANCER NON-RESECTABLE
     Dosage: 1600 MG, UNK
     Route: 042
     Dates: start: 20070604, end: 20070618
  2. GEMCITABINE HCL [Suspect]
     Dosage: 1200 MG, UNK
     Route: 042
     Dates: start: 20070702, end: 20070910
  3. GEMCITABINE HCL [Suspect]
     Dosage: 1200 MG, UNK
     Route: 042
     Dates: start: 20071022, end: 20071022
  4. GEMCITABINE HCL [Suspect]
     Dosage: 1200 MG, UNK
     Route: 042
     Dates: start: 20080107, end: 20080303

REACTIONS (1)
  - CHOLECYSTITIS [None]
